FAERS Safety Report 12238316 (Version 1)
Quarter: 2016Q2

REPORT INFORMATION
  Report Type: Spontaneous
  Country: NO (occurrence: NO)
  Receive Date: 20160405
  Receipt Date: 20160405
  Transmission Date: 20160815
  Serious: Yes (Death, Hospitalization)
  Sender: FDA-Public Use
  Company Number: NO-PFIZER INC-2016187779

PATIENT
  Age: 93 Year
  Sex: Male

DRUGS (1)
  1. CYKLOKAPRON [Suspect]
     Active Substance: TRANEXAMIC ACID
     Indication: HAEMATURIA
     Route: 048
     Dates: start: 20160306, end: 20160310

REACTIONS (2)
  - Urinary bladder haemorrhage [Fatal]
  - Bladder perforation [Fatal]

NARRATIVE: CASE EVENT DATE: 20160306
